FAERS Safety Report 21283196 (Version 1)
Quarter: 2022Q3

REPORT INFORMATION
  Report Type: Other
  Country: ES (occurrence: ES)
  Receive Date: 20220901
  Receipt Date: 20220901
  Transmission Date: 20221027
  Serious: Yes (Hospitalization)
  Sender: FDA-Public Use
  Company Number: None

PATIENT
  Age: 51 Year
  Sex: Female

DRUGS (4)
  1. PERTUZUMAB [Suspect]
     Active Substance: PERTUZUMAB
     Indication: Breast cancer
     Dosage: CYCLE EVERY 21 DAYS
     Route: 065
     Dates: start: 20210930
  2. TRASTUZUMAB [Suspect]
     Active Substance: TRASTUZUMAB
     Indication: Breast cancer
     Dosage: 1 CYCLE EVERY 21 DAYS?PACK OF 1 VIAL CONTAINING 600 MG/5 ML OF TRASTUZUMAB
     Route: 065
     Dates: start: 20210930
  3. CARBOPLATIN [Suspect]
     Active Substance: CARBOPLATIN
     Indication: Breast cancer
     Dosage: 1 CYCLE EVERY 21 DAYS?1 VIAL OF 15 ML
     Route: 065
     Dates: start: 20210930
  4. DOCETAXEL [Suspect]
     Active Substance: DOCETAXEL
     Indication: Breast cancer
     Dosage: 1 CYCLE EVERY 21 DAYS?1 VIAL OF 1 ML
     Route: 065
     Dates: start: 20210930

REACTIONS (3)
  - Neutropenia [Recovered/Resolved]
  - Febrile neutropenia [Recovered/Resolved]
  - Drug interaction [Unknown]

NARRATIVE: CASE EVENT DATE: 20211027
